FAERS Safety Report 14677632 (Version 1)
Quarter: 2018Q1

REPORT INFORMATION
  Report Type: Spontaneous
  Country: US (occurrence: US)
  Receive Date: 20180324
  Receipt Date: 20180324
  Transmission Date: 20180509
  Serious: Yes (Life-Threatening, Hospitalization, Disabling)
  Sender: FDA-Public Use
  Company Number: None

PATIENT
  Age: 25 Year
  Sex: Female
  Weight: 72 kg

DRUGS (1)
  1. CLONAZEPAM. [Suspect]
     Active Substance: CLONAZEPAM
     Indication: ANXIETY
     Dosage: ?          QUANTITY:90 TABLET(S);?
     Route: 048

REACTIONS (14)
  - Vertigo [None]
  - Loss of personal independence in daily activities [None]
  - Hallucination [None]
  - Dysstasia [None]
  - Withdrawal syndrome [None]
  - Feeling abnormal [None]
  - Fall [None]
  - Malaise [None]
  - Joint stiffness [None]
  - Migraine [None]
  - Arthralgia [None]
  - Paranoia [None]
  - Memory impairment [None]
  - Myalgia [None]

NARRATIVE: CASE EVENT DATE: 20180127
